FAERS Safety Report 10300046 (Version 1)
Quarter: 2014Q3

REPORT INFORMATION
  Report Type: Spontaneous
  Country: US (occurrence: US)
  Receive Date: 20140711
  Receipt Date: 20140711
  Transmission Date: 20150326
  Serious: Yes (Hospitalization)
  Sender: FDA-Public Use
  Company Number: US-GLAXOSMITHKLINE-A1080369A

PATIENT
  Sex: Female

DRUGS (15)
  1. GLUCOSAMINE [Concomitant]
     Active Substance: GLUCOSAMINE
  2. MAGNESIUM [Concomitant]
     Active Substance: MAGNESIUM
  3. MUCINEX [Concomitant]
     Active Substance: GUAIFENESIN
  4. LASIX [Concomitant]
     Active Substance: FUROSEMIDE
  5. ADVAIR HFA [Suspect]
     Active Substance: FLUTICASONE PROPIONATE\SALMETEROL XINAFOATE
     Indication: CHRONIC OBSTRUCTIVE PULMONARY DISEASE
     Dosage: 1PUFF TWICE PER DAY
     Route: 055
  6. SPIRIVA [Concomitant]
     Active Substance: TIOTROPIUM BROMIDE MONOHYDRATE
  7. SINGULAIR [Concomitant]
     Active Substance: MONTELUKAST SODIUM
  8. NEBULIZER [Concomitant]
     Active Substance: UNSPECIFIED INGREDIENT
  9. ZYRTEC [Concomitant]
     Active Substance: CETIRIZINE HYDROCHLORIDE
  10. OCUVITE [Concomitant]
     Active Substance: VITAMINS
  11. PREDNISONE. [Concomitant]
     Active Substance: PREDNISONE
  12. MICARDIS [Concomitant]
     Active Substance: TELMISARTAN
  13. KRILL OIL [Concomitant]
     Active Substance: DIETARY SUPPLEMENT
  14. XANAX [Concomitant]
     Active Substance: ALPRAZOLAM
  15. HCTZ [Concomitant]
     Active Substance: HYDROCHLOROTHIAZIDE

REACTIONS (14)
  - Dysphagia [Not Recovered/Not Resolved]
  - Helicobacter infection [Not Recovered/Not Resolved]
  - Cough [Not Recovered/Not Resolved]
  - Tonsillar disorder [Unknown]
  - Cardiac failure congestive [Not Recovered/Not Resolved]
  - Productive cough [Unknown]
  - Heart rate increased [Not Recovered/Not Resolved]
  - Respiratory tract infection [Unknown]
  - Cardiac arrest [Recovered/Resolved]
  - Dysphonia [Not Recovered/Not Resolved]
  - Pyrexia [Not Recovered/Not Resolved]
  - Vocal cord disorder [Not Recovered/Not Resolved]
  - Swelling [Not Recovered/Not Resolved]
  - Tonsillitis [Unknown]

NARRATIVE: CASE EVENT DATE: 2013
